FAERS Safety Report 12456925 (Version 1)
Quarter: 2016Q2

REPORT INFORMATION
  Report Type: Report from Study
  Country: ZW (occurrence: ZW)
  Receive Date: 20160610
  Receipt Date: 20160610
  Transmission Date: 20160815
  Serious: Yes (Death, Other)
  Sender: FDA-Public Use
  Company Number: ZW-GILEAD-2016-0217550

PATIENT
  Age: 33 Year
  Sex: Female
  Weight: 47 kg

DRUGS (6)
  1. EFAVIRENZ/EMTRICITABINE/TENOFOVIR DISOPROXIL FUMARATE [Suspect]
     Active Substance: EFAVIRENZ\EMTRICITABINE\TENOFOVIR DISOPROXIL FUMARATE
     Indication: KAPOSI^S SARCOMA AIDS RELATED
     Dosage: 1 DF, QD
     Route: 048
     Dates: start: 20160120, end: 20160516
  2. SAFERON                            /00023548/ [Concomitant]
     Dosage: UNK
     Dates: end: 20160517
  3. MORPHINE SULFATE. [Concomitant]
     Active Substance: MORPHINE SULFATE
     Dosage: UNK
     Dates: end: 20160517
  4. BLEOMYCIN [Suspect]
     Active Substance: BLEOMYCIN SULFATE
     Indication: KAPOSI^S SARCOMA AIDS RELATED
     Dosage: 22.2 UNITS, Q3WK
     Route: 042
     Dates: start: 20160120, end: 20160302
  5. SULFAMETHOXAZOLE AND TRIMETHOPRIM [Concomitant]
     Active Substance: SULFAMETHOXAZOLE\TRIMETHOPRIM
     Dosage: UNK
     Dates: end: 20160517
  6. VINCRISTINE [Suspect]
     Active Substance: VINCRISTINE
     Indication: KAPOSI^S SARCOMA AIDS RELATED
     Dosage: 2 MG, Q3WK
     Route: 042
     Dates: start: 20160120, end: 20160302

REACTIONS (1)
  - Kaposi^s sarcoma [Fatal]
